FAERS Safety Report 5331253-3 (Version None)
Quarter: 2007Q2

REPORT INFORMATION
  Report Type: 
  Country: None (occurrence: None)
  Receive Date: 20070301
  Receipt Date: 20060112
  Transmission Date: 20071010
  Serious: Yes (Other)
  Sender: FDA-Public Use
  Company Number: 200508716

PATIENT
  Sex: Female

DRUGS (3)
  1. ACULAR [Suspect]
     Indication: PROPHYLAXIS
     Dosage: 1 GTT, QID, OPHTHALMIC
     Route: 047
  2. ZYMAR [Concomitant]
  3. PRED FORTE                        [R] (PREDNISOLONE ACETATE) [Concomitant]

REACTIONS (4)
  - CORNEAL DISORDER [None]
  - EYE IRRITATION [None]
  - EYE PAIN [None]
  - VISUAL ACUITY REDUCED [None]
